FAERS Safety Report 15609832 (Version 2)
Quarter: 2018Q4

REPORT INFORMATION
  Report Type: Report from Study
  Country: CA (occurrence: CA)
  Receive Date: 20181113
  Receipt Date: 20181122
  Transmission Date: 20190205
  Serious: Yes (Hospitalization)
  Sender: FDA-Public Use
  Company Number: CA-ROCHE-2211961

PATIENT
  Age: 69 Year
  Sex: Male

DRUGS (3)
  1. RITUXAN [Suspect]
     Active Substance: RITUXIMAB
     Indication: GRANULOMATOSIS WITH POLYANGIITIS
     Route: 042
     Dates: start: 20170406
  2. RITUXAN [Suspect]
     Active Substance: RITUXIMAB
     Indication: VASCULITIS
  3. ASA [Concomitant]
     Active Substance: ASPIRIN

REACTIONS (7)
  - Dyspnoea [Recovered/Resolved]
  - Headache [Recovered/Resolved]
  - Body temperature decreased [Unknown]
  - Chills [Recovered/Resolved]
  - Sinusitis [Recovered/Resolved]
  - Blood pressure systolic increased [Unknown]
  - Oxygen saturation decreased [Unknown]

NARRATIVE: CASE EVENT DATE: 201810
